FAERS Safety Report 11778753 (Version 2)
Quarter: 2015Q4

REPORT INFORMATION
  Report Type: Spontaneous
  Country: TW (occurrence: TW)
  Receive Date: 20151125
  Receipt Date: 20151217
  Transmission Date: 20160304
  Serious: Yes (Death)
  Sender: FDA-Public Use
  Company Number: TW-PFIZER INC-2015402273

PATIENT
  Age: 62 Year
  Sex: Male

DRUGS (1)
  1. AXITINIB [Suspect]
     Active Substance: AXITINIB
     Indication: CLEAR CELL RENAL CELL CARCINOMA
     Dosage: 5 MG, BID
     Dates: start: 201307, end: 201402

REACTIONS (5)
  - Hypertension [Unknown]
  - Diarrhoea [Unknown]
  - Proteinuria [Unknown]
  - Dysphonia [Unknown]
  - Asphyxia [Fatal]
